FAERS Safety Report 21792767 (Version 1)
Quarter: 2022Q4

REPORT INFORMATION
  Report Type: Report from Study
  Country: IN (occurrence: IN)
  Receive Date: 20221229
  Receipt Date: 20221229
  Transmission Date: 20230113
  Serious: Yes (Other)
  Sender: FDA-Public Use
  Company Number: IN-002147023-NVSC2021IN098811

PATIENT
  Age: 50 Year
  Sex: Female

DRUGS (8)
  1. VOTRIENT [Suspect]
     Active Substance: PAZOPANIB HYDROCHLORIDE
     Indication: Renal cell carcinoma
     Dosage: 800 MG, QD
     Route: 065
     Dates: start: 202004, end: 202006
  2. VOTRIENT [Suspect]
     Active Substance: PAZOPANIB HYDROCHLORIDE
     Dosage: UNK UNK, OTHER (400MG OD IN MORNING + 200 MG OD IN EVENING)
     Route: 065
     Dates: start: 202006, end: 202009
  3. VOTRIENT [Suspect]
     Active Substance: PAZOPANIB HYDROCHLORIDE
     Dosage: 400 MG, QD
     Route: 065
     Dates: start: 20200606, end: 20210418
  4. VOTRIENT [Suspect]
     Active Substance: PAZOPANIB HYDROCHLORIDE
     Dosage: 200 MG, QD
     Route: 065
     Dates: start: 202009, end: 202102
  5. VOTRIENT [Suspect]
     Active Substance: PAZOPANIB HYDROCHLORIDE
     Dosage: 200 MG, QD
     Route: 065
     Dates: start: 20210419
  6. VOTRIENT [Suspect]
     Active Substance: PAZOPANIB HYDROCHLORIDE
     Dosage: 200 MG, QD
     Route: 065
     Dates: start: 202105
  7. VOTRIENT [Suspect]
     Active Substance: PAZOPANIB HYDROCHLORIDE
     Dosage: 200 MG, QD
     Route: 065
     Dates: start: 202208
  8. VOTRIENT [Suspect]
     Active Substance: PAZOPANIB HYDROCHLORIDE
     Dosage: 200 MG, QD
     Route: 065
     Dates: start: 20221130

REACTIONS (5)
  - Blood thyroid stimulating hormone increased [Unknown]
  - Facial spasm [Unknown]
  - Drug intolerance [Recovered/Resolved]
  - Hypertension [Recovered/Resolved]
  - Product use issue [Unknown]

NARRATIVE: CASE EVENT DATE: 20200901
